FAERS Safety Report 4304729-5 (Version None)
Quarter: 2004Q1

REPORT INFORMATION
  Report Type: 
  Country: None (occurrence: None)
  Receive Date: 20040226
  Receipt Date: 20031124
  Transmission Date: 20041129
  Serious: Yes (Other)
  Sender: FDA-Public Use
  Company Number: US-GLAXOSMITHKLINE-A0441029A

PATIENT
  Age: 31 Year
  Sex: Female

DRUGS (4)
  1. WELLBUTRIN [Suspect]
     Indication: DEPRESSION
     Route: 048
     Dates: start: 20031122, end: 20031124
  2. SEROQUEL [Concomitant]
  3. KLONOPIN [Concomitant]
  4. LEXAPRO [Concomitant]

REACTIONS (1)
  - CONVULSION [None]
